FAERS Safety Report 6939489-2 (Version None)
Quarter: 2010Q3

REPORT INFORMATION
  Report Type: 
  Country: None (occurrence: None)
  Receive Date: 20100820
  Receipt Date: 20100817
  Transmission Date: 20110219
  Serious: Yes (Hospitalization)
  Sender: FDA-Public Use
  Company Number: KV201000263

PATIENT
  Age: 52 Year
  Sex: Male

DRUGS (2)
  1. AMLODIPINE BESYLATE [Suspect]
     Indication: HYPERTENSION
     Dosage: 5 MG UNK ORAL
     Route: 048
  2. LOXOPROFEN SODIUM (LOXOPROFEN SDDIUM) [Suspect]
     Indication: ARTHRALGIA
     Dosage: 120 MG UNK ORAL
     Route: 048

REACTIONS (4)
  - CHOLESTATIC LIVER INJURY [None]
  - DECREASED APPETITE [None]
  - FATIGUE [None]
  - JAUNDICE [None]
